FAERS Safety Report 12869623 (Version 2)
Quarter: 2017Q1

REPORT INFORMATION
  Report Type: Report from Study
  Country: US (occurrence: US)
  Receive Date: 20161020
  Receipt Date: 20170124
  Transmission Date: 20170428
  Serious: No
  Sender: FDA-Public Use
  Company Number: US-AMGEN-USASL2016112423

PATIENT
  Age: 60 Year
  Sex: Male

DRUGS (1)
  1. REPATHA [Suspect]
     Active Substance: EVOLOCUMAB
     Indication: PRODUCT USED FOR UNKNOWN INDICATION
     Dosage: 140 MG, Q2WK
     Route: 065
     Dates: start: 20160808

REACTIONS (7)
  - Throat irritation [Recovered/Resolved]
  - Oropharyngeal pain [Unknown]
  - Pain [Unknown]
  - Injection site pain [Recovered/Resolved]
  - Rhinorrhoea [Unknown]
  - Fatigue [Unknown]
  - Nervousness [Unknown]

NARRATIVE: CASE EVENT DATE: 201608
